FAERS Safety Report 5566242-7 (Version None)
Quarter: 2007Q4

REPORT INFORMATION
  Report Type: 
  Country: None (occurrence: None)
  Receive Date: 20071219
  Receipt Date: 20071213
  Transmission Date: 20080405
  Serious: Yes (Other)
  Sender: FDA-Public Use
  Company Number: JP-BRISTOL-MYERS SQUIBB COMPANY-14018147

PATIENT
  Age: 63 Year
  Sex: Female

DRUGS (2)
  1. MITOMYCIN [Suspect]
     Indication: OVARIAN CANCER
     Dosage: MITOMYCIN-INJECTION
     Route: 042
     Dates: start: 20050114, end: 20050328
  2. CAMPTO [Suspect]
     Indication: OVARIAN CANCER
     Route: 042

REACTIONS (1)
  - ANAPHYLACTOID REACTION [None]
